FAERS Safety Report 9004466 (Version 1)
Quarter: 2012Q4

REPORT INFORMATION
  Report Type: Spontaneous
  Country: DK (occurrence: None)
  Receive Date: 20121227
  Receipt Date: 20121227
  Transmission Date: 20130627
  Serious: Yes (Hospitalization)
  Sender: FDA-Public Use
  Company Number: 2012MA014257

PATIENT
  Age: 74 Year
  Sex: Female

DRUGS (15)
  1. MIRTAZAPINE [Suspect]
     Dosage: QHS
     Route: 048
  2. MORPHINE [Concomitant]
  3. SPIRONOLACTONE [Concomitant]
  4. SERETIDE [Concomitant]
  5. VENTOLIN [Concomitant]
  6. RANITIDINE [Concomitant]
  7. QUININE [Concomitant]
  8. PARACETAMOL [Concomitant]
  9. ISOSORBIDE MONONITRATE [Concomitant]
  10. GLYCERYL TRINITRATE [Concomitant]
  11. GABAPENTIN [Concomitant]
  12. ACETYLSALICYLIC ACID [Concomitant]
  13. ADCAL [Concomitant]
  14. EZETIMIBE [Concomitant]
  15. BISOPROLOL [Concomitant]

REACTIONS (1)
  - Restless legs syndrome [None]
